FAERS Safety Report 4871391-2 (Version None)
Quarter: 2005Q4

REPORT INFORMATION
  Report Type: 
  Country: None (occurrence: None)
  Receive Date: 20051229
  Receipt Date: 20051214
  Transmission Date: 20060501
  Serious: Yes (Other)
  Sender: FDA-Public Use
  Company Number: US200512002430

PATIENT
  Age: 41 Year
  Sex: Female

DRUGS (4)
  1. HUMULIN N [Suspect]
     Indication: DIABETES MELLITUS
  2. HUMALOG [Suspect]
     Indication: DIABETES MELLITUS
  3. ILETIN [Suspect]
     Indication: DIABETES MELLITUS
     Dosage: DAILY (1/D)
     Dates: start: 19730101
  4. LANTUS [Concomitant]

REACTIONS (4)
  - BLOOD GLUCOSE INCREASED [None]
  - CHOLELITHIASIS [None]
  - CONVULSION [None]
  - RASH GENERALISED [None]
